FAERS Safety Report 15574978 (Version 1)
Quarter: 2018Q4

REPORT INFORMATION
  Report Type: Spontaneous
  Country: FR (occurrence: FR)
  Receive Date: 20181101
  Receipt Date: 20181101
  Transmission Date: 20190205
  Serious: Yes (Other)
  Sender: FDA-Public Use
  Company Number: FR-TEVA-2018-FR-971615

PATIENT
  Age: 39 Year
  Sex: Female

DRUGS (4)
  1. LEXOMIL [Concomitant]
     Active Substance: BROMAZEPAM
  2. DEPAKINE [Concomitant]
     Active Substance: VALPROATE SODIUM
  3. COPAXONE [Suspect]
     Active Substance: GLATIRAMER ACETATE
     Indication: MULTIPLE SCLEROSIS
     Dosage: 20 MILLIGRAM/MILLILITERS DAILY;
     Route: 065
     Dates: start: 2009
  4. LEVOTHYROX 137 [Concomitant]

REACTIONS (6)
  - Injection site pain [Unknown]
  - Staphylococcal infection [Unknown]
  - Adverse drug reaction [Unknown]
  - Product use issue [Unknown]
  - Injection site induration [Unknown]
  - Injection site swelling [Unknown]

NARRATIVE: CASE EVENT DATE: 20181028
